FAERS Safety Report 18945981 (Version 3)
Quarter: 2021Q2

REPORT INFORMATION
  Report Type: Report from Study
  Country: ES (occurrence: ES)
  Receive Date: 20210226
  Receipt Date: 20210406
  Transmission Date: 20210717
  Serious: Yes (Other)
  Sender: FDA-Public Use
  Company Number: ES-TAKEDA-2021TUS011328

PATIENT
  Age: 17 Year
  Sex: Male

DRUGS (3)
  1. ADVATE [Suspect]
     Active Substance: ANTIHEMOPHILIC FACTOR, HUMAN RECOMBINANT
     Indication: FACTOR VIII DEFICIENCY
     Dosage: 750 UI C
     Route: 042
     Dates: start: 2003, end: 2018
  2. ADVATE [Suspect]
     Active Substance: ANTIHEMOPHILIC FACTOR, HUMAN RECOMBINANT
     Indication: FACTOR VIII DEFICIENCY
     Dosage: 750 UI C
     Route: 042
     Dates: start: 2003, end: 2018
  3. ADVATE [Suspect]
     Active Substance: ANTIHEMOPHILIC FACTOR, HUMAN RECOMBINANT
     Indication: FACTOR VIII DEFICIENCY
     Dosage: 750 UI C
     Route: 042
     Dates: start: 2003, end: 2018

REACTIONS (7)
  - Poor venous access [Unknown]
  - Discomfort [Unknown]
  - Coagulation factor VIII level decreased [Unknown]
  - Arthralgia [Unknown]
  - Device related infection [Unknown]
  - Myalgia [Unknown]
  - Catheter site haemorrhage [Unknown]

NARRATIVE: CASE EVENT DATE: 2009
